FAERS Safety Report 10253317 (Version 1)
Quarter: 2014Q2

REPORT INFORMATION
  Report Type: Spontaneous
  Country: US (occurrence: US)
  Receive Date: 20140623
  Receipt Date: 20140623
  Transmission Date: 20141212
  Serious: No
  Sender: FDA-Public Use
  Company Number: US-SHIONOGI, INC-2014000336

PATIENT
  Age: 57 Year
  Sex: Female

DRUGS (2)
  1. OSPHENA [Suspect]
     Indication: DYSPAREUNIA
     Dosage: 60 MG, QD
     Route: 065
     Dates: start: 2014
  2. OSPHENA [Suspect]
     Indication: VULVOVAGINAL DRYNESS

REACTIONS (1)
  - Vaginal discharge [Unknown]
